FAERS Safety Report 10192414 (Version 1)
Quarter: 2014Q2

REPORT INFORMATION
  Report Type: Spontaneous
  Country: DK (occurrence: DK)
  Receive Date: 20140523
  Receipt Date: 20140523
  Transmission Date: 20141212
  Serious: Yes (Life-Threatening, Hospitalization)
  Sender: FDA-Public Use
  Company Number: DK-BRISTOL-MYERS SQUIBB COMPANY-20733747

PATIENT
  Age: 56 Year
  Sex: Male

DRUGS (17)
  1. FORXIGA [Suspect]
     Indication: DIABETES MELLITUS
     Dosage: STYRKE: 10 MG ?FILM-COATED TABLET
     Dates: start: 20140131, end: 20140216
  2. LOSARTAN [Suspect]
     Indication: HYPERTENSION
  3. SPIRIX [Suspect]
     Indication: OEDEMA
  4. ZANIDIP [Suspect]
     Indication: HYPERTENSION
  5. CORODIL [Concomitant]
     Indication: HYPERTENSION
  6. FURIX [Concomitant]
     Indication: HYPERTENSION
  7. HJERTEMAGNYL [Concomitant]
  8. INSULATARD FLEXPEN [Concomitant]
     Indication: DIABETES MELLITUS
  9. KALEORID [Concomitant]
     Indication: HYPERTENSION
  10. CODEINE [Concomitant]
     Indication: PAIN
  11. METFORMIN [Concomitant]
     Indication: DIABETES MELLITUS
  12. PANODIL [Concomitant]
     Indication: PAIN
  13. SELO-ZOK [Concomitant]
     Indication: HYPERTENSION
  14. SIMVASTATIN [Concomitant]
     Indication: HYPERCHOLESTEROLAEMIA
  15. STILNOCT [Concomitant]
     Indication: INSOMNIA
  16. HYDROXOCOBALAMIN [Concomitant]
     Indication: VITAMIN B12 DEFICIENCY
  17. ERYTHROMYCIN ETHYL SUCCINATE [Concomitant]
     Indication: INFECTION

REACTIONS (3)
  - Renal failure acute [Recovered/Resolved]
  - Hyperkalaemia [Recovered/Resolved]
  - Discomfort [Recovered/Resolved]
